FAERS Safety Report 11309642 (Version 1)
Quarter: 2015Q3

REPORT INFORMATION
  Report Type: Spontaneous
  Country: TR (occurrence: TR)
  Receive Date: 20150724
  Receipt Date: 20150724
  Transmission Date: 20151125
  Serious: Yes (Hospitalization)
  Sender: FDA-Public Use
  Company Number: TR-JNJFOC-20150715471

PATIENT
  Age: 25 Year
  Sex: Female

DRUGS (1)
  1. RISPERIDONE. [Suspect]
     Active Substance: RISPERIDONE
     Indication: BRIEF PSYCHOTIC DISORDER, WITH POSTPARTUM ONSET
     Route: 048

REACTIONS (6)
  - Drug ineffective [Unknown]
  - Blood creatine phosphokinase increased [Unknown]
  - Encephalitis autoimmune [Unknown]
  - Cogwheel rigidity [Unknown]
  - Pyrexia [Unknown]
  - Leukocytosis [Unknown]
